FAERS Safety Report 10075113 (Version 2)
Quarter: 2014Q2

REPORT INFORMATION
  Report Type: Report from Study
  Country: CO (occurrence: CO)
  Receive Date: 20140414
  Receipt Date: 20140425
  Transmission Date: 20141212
  Serious: Yes (Death, Hospitalization)
  Sender: FDA-Public Use
  Company Number: CO-ROCHE-1382803

PATIENT
  Age: 87 Year
  Sex: Male

DRUGS (6)
  1. RANIBIZUMAB [Suspect]
     Indication: MACULAR DEGENERATION
     Route: 050
     Dates: start: 201309
  2. RANIBIZUMAB [Suspect]
     Route: 050
     Dates: start: 201310
  3. LOSARTAN [Concomitant]
  4. AMLODIPINE [Concomitant]
  5. ACETYLSALICYLIC ACID [Concomitant]
  6. LOVASTATIN [Concomitant]

REACTIONS (1)
  - Infarction [Fatal]
